FAERS Safety Report 25203550 (Version 2)
Quarter: 2025Q2

REPORT INFORMATION
  Report Type: Spontaneous
  Country: US (occurrence: US)
  Receive Date: 20250416
  Receipt Date: 20250510
  Transmission Date: 20250716
  Serious: No
  Sender: SANOFI AVENTIS
  Company Number: US-SA-2025SA108750

PATIENT
  Age: 25 Year
  Sex: Male
  Weight: 60.45 kg

DRUGS (3)
  1. DUPIXENT [Suspect]
     Active Substance: DUPILUMAB
     Indication: Eosinophilic oesophagitis
     Dosage: 300 MG, QW
     Route: 058
     Dates: start: 20250410
  2. VITAMINS [Concomitant]
     Active Substance: VITAMINS
     Dosage: DAILY
  3. VITAMIN D3 [Concomitant]
     Active Substance: CHOLECALCIFEROL

REACTIONS (16)
  - Somnolence [Unknown]
  - Headache [Unknown]
  - Injection site paraesthesia [Unknown]
  - Fatigue [Recovering/Resolving]
  - Lethargy [Unknown]
  - Injection site haemorrhage [Not Recovered/Not Resolved]
  - Condition aggravated [Recovering/Resolving]
  - Muscle tightness [Not Recovered/Not Resolved]
  - Injection site warmth [Not Recovered/Not Resolved]
  - Injection site nodule [Not Recovered/Not Resolved]
  - Dizziness [Unknown]
  - Injection site bruising [Not Recovered/Not Resolved]
  - Injection site swelling [Recovering/Resolving]
  - Arthralgia [Not Recovered/Not Resolved]
  - Injection site erythema [Not Recovered/Not Resolved]
  - Injection site pain [Not Recovered/Not Resolved]

NARRATIVE: CASE EVENT DATE: 20250401
